FAERS Safety Report 7195683-X (Version None)
Quarter: 2010Q4

REPORT INFORMATION
  Report Type: 
  Country: None (occurrence: None)
  Receive Date: 20101223
  Receipt Date: 20101007
  Transmission Date: 20110411
  Serious: No
  Sender: FDA-Public Use
  Company Number: US-AMGEN-KDL444280

PATIENT

DRUGS (1)
  1. ENBREL [Suspect]
     Indication: RHEUMATOID ARTHRITIS
     Dosage: 50 MG, QWK
     Route: 058

REACTIONS (6)
  - EYELID PTOSIS [None]
  - INCISION SITE COMPLICATION [None]
  - NASOPHARYNGITIS [None]
  - PLATELET COUNT DECREASED [None]
  - PNEUMONIA [None]
  - VISION BLURRED [None]
